FAERS Safety Report 10649543 (Version 5)
Quarter: 2016Q1

REPORT INFORMATION
  Report Type: Spontaneous
  Country: US (occurrence: US)
  Receive Date: 20141212
  Receipt Date: 20160106
  Transmission Date: 20160525
  Serious: Yes (Death, Hospitalization, Other)
  Sender: FDA-Public Use
  Company Number: US-PFIZER INC-2014334286

PATIENT
  Age: 86 Year
  Sex: Female
  Weight: 59 kg

DRUGS (11)
  1. COUMADIN [Concomitant]
     Active Substance: WARFARIN SODIUM
     Dosage: UNK
     Dates: start: 200710
  2. REVATIO [Suspect]
     Active Substance: SILDENAFIL CITRATE
     Dosage: UNK
  3. COUMADIN [Concomitant]
     Active Substance: WARFARIN SODIUM
     Indication: CEREBROVASCULAR ACCIDENT PROPHYLAXIS
     Dosage: 20 MG,(20 MG TABLET, ONE HALF A TABLET FIVE DAYS A WEEK AND ONE FULL TABLET TWO DAYS A WEEKT)
     Route: 048
     Dates: start: 200710
  4. COUMADIN [Concomitant]
     Active Substance: WARFARIN SODIUM
     Dosage: 5 MG ON THURSDAY AND SUNDAY AND 2.5 MG ON THE OTHER DAYS
     Route: 048
     Dates: start: 200710
  5. REVATIO [Suspect]
     Active Substance: SILDENAFIL CITRATE
     Indication: PULMONARY ARTERIAL HYPERTENSION
     Dosage: 20 MG, 3X/DAY
     Route: 048
     Dates: start: 200901
  6. COUMADIN [Concomitant]
     Active Substance: WARFARIN SODIUM
     Dosage: 2.5 MG;5 MG ON THURSDAY AND SUNDAY AND 2.5 MG ON THE OTHER DAYS
     Dates: start: 200710
  7. OXYGEN. [Concomitant]
     Active Substance: OXYGEN
     Dosage: UNK
     Dates: start: 200711
  8. METOPROLOL. [Concomitant]
     Active Substance: METOPROLOL
     Indication: BLOOD PRESSURE ABNORMAL
     Dosage: 100 MG, DAILY
     Route: 048
  9. SYNTHROID [Concomitant]
     Active Substance: LEVOTHYROXINE SODIUM
     Dosage: 50 ?G, 1X/DAY
     Route: 048
     Dates: start: 200708
  10. CENTRUM SILVER EYE CAPS [Concomitant]
     Dosage: ONE TABLET
     Route: 048
  11. CALCIUM 600 MG PLUS D [Concomitant]
     Dosage: ONE TABLET
     Route: 048

REACTIONS (10)
  - Death [Fatal]
  - Atrial fibrillation [Unknown]
  - Cardiac failure congestive [Unknown]
  - Haematochezia [Unknown]
  - Deafness [Not Recovered/Not Resolved]
  - Condition aggravated [Unknown]
  - Pneumonia legionella [Unknown]
  - Pulmonary arterial hypertension [Unknown]
  - Circulatory collapse [Unknown]
  - Visual acuity reduced [Not Recovered/Not Resolved]

NARRATIVE: CASE EVENT DATE: 200907
